FAERS Safety Report 16949136 (Version 1)
Quarter: 2019Q4

REPORT INFORMATION
  Report Type: Spontaneous
  Country: CA (occurrence: CA)
  Receive Date: 20191023
  Receipt Date: 20191023
  Transmission Date: 20200122
  Serious: Yes (Other)
  Sender: FDA-Public Use
  Company Number: CA-ABBVIE-19K-028-2967482-00

PATIENT
  Age: 57 Year
  Sex: Male

DRUGS (4)
  1. VITAMIN B12 [Concomitant]
     Active Substance: CYANOCOBALAMIN
     Indication: PRODUCT USED FOR UNKNOWN INDICATION
     Dosage: 1000 MCG/ML
  2. CHOLESTYRAMINE. [Concomitant]
     Active Substance: CHOLESTYRAMINE
     Indication: DIARRHOEA
     Dosage: ORAL PACKET
  3. HUMIRA [Suspect]
     Active Substance: ADALIMUMAB
     Indication: PRODUCT USED FOR UNKNOWN INDICATION
     Route: 058
     Dates: start: 2015, end: 2016
  4. TYLENOL [Concomitant]
     Active Substance: ACETAMINOPHEN
     Indication: PRODUCT USED FOR UNKNOWN INDICATION
     Dosage: 6-8 DAILY

REACTIONS (14)
  - Frequent bowel movements [Unknown]
  - Hyperhidrosis [Unknown]
  - Small intestinal obstruction [Unknown]
  - Hernia [Unknown]
  - Homicidal ideation [Unknown]
  - Unevaluable event [Unknown]
  - Pain [Unknown]
  - Colectomy [Unknown]
  - Crohn^s disease [Unknown]
  - Nausea [Unknown]
  - Adverse event [Unknown]
  - Fistula [Unknown]
  - Faecal calprotectin increased [Unknown]
  - Drug ineffective [Unknown]

NARRATIVE: CASE EVENT DATE: 201904
